FAERS Safety Report 13068706 (Version 1)
Quarter: 2016Q4

REPORT INFORMATION
  Report Type: Spontaneous
  Country: US (occurrence: US)
  Receive Date: 20161228
  Receipt Date: 20161228
  Transmission Date: 20170207
  Serious: No
  Sender: FDA-Public Use
  Company Number: US-MYLANLABS-2016M1041129

PATIENT
  Age: 43 Year
  Sex: Female
  Weight: 66.67 kg

DRUGS (1)
  1. TRAMADOL MYLAN [Suspect]
     Active Substance: TRAMADOL
     Dosage: 100 MG, 2X
     Route: 048
     Dates: start: 20160803, end: 201608

REACTIONS (3)
  - Adverse event [Recovered/Resolved]
  - Wrong drug administered [Recovered/Resolved]
  - Reaction to drug excipients [Recovered/Resolved]

NARRATIVE: CASE EVENT DATE: 2016
